FAERS Safety Report 17667085 (Version 2)
Quarter: 2021Q4

REPORT INFORMATION
  Report Type: Report from Study
  Country: JP (occurrence: JP)
  Receive Date: 20200414
  Receipt Date: 20211025
  Transmission Date: 20220303
  Serious: Yes (Hospitalization)
  Sender: FDA-Public Use
  Company Number: JP-DSJP-DSJ-2019-108180AA

PATIENT
  Age: 70 Year
  Sex: Female
  Weight: 43 kg

DRUGS (20)
  1. TRASTUZUMAB DERUXTECAN [Suspect]
     Active Substance: TRASTUZUMAB DERUXTECAN
     Indication: HER2 positive breast cancer
     Dosage: 5.4 MG/KG, ONCE EVERY 3 WK
     Route: 041
     Dates: start: 20190128, end: 20190220
  2. ADETPHOS [Concomitant]
     Active Substance: ADENOSINE TRIPHOSPHATE
     Indication: Dizziness
     Dosage: 1 G, TID
     Route: 048
     Dates: start: 20190108
  3. VIDARABINE [Concomitant]
     Active Substance: VIDARABINE
     Indication: Angular cheilitis
     Dosage: UNK, QD
     Route: 062
     Dates: start: 20190220
  4. AZOSEMIDE [Concomitant]
     Active Substance: AZOSEMIDE
     Indication: Cardiomyopathy
     Dosage: 30 MG, QD
     Route: 048
     Dates: start: 20181228
  5. AZUNOL                             /00317302/ [Concomitant]
     Indication: Skin ulcer
     Dosage: UNK, QD
     Route: 062
     Dates: start: 20180921
  6. BETAHISTINE MESILATE [Concomitant]
     Active Substance: BETAHISTINE MESILATE
     Indication: Dizziness
     Dosage: 6 MG, TID
     Route: 048
     Dates: start: 20190108
  7. BISOPROLOL FUMARATE [Concomitant]
     Active Substance: BISOPROLOL FUMARATE
     Indication: Cardiomyopathy
     Dosage: 0.625 MG, QD
     Route: 048
     Dates: start: 20181228
  8. HERBALS [Concomitant]
     Active Substance: HERBALS
     Indication: Neuropathy peripheral
     Dosage: 2.5 G, TID
     Route: 048
     Dates: start: 20181130
  9. LOXOPROFEN SODIUM DIHYDRATE [Concomitant]
     Active Substance: LOXOPROFEN SODIUM DIHYDRATE
     Indication: Pyrexia
     Dosage: 60 MG, AS NEEDED
     Route: 048
     Dates: start: 20180128
  10. METHYLCOBALAMIN [Concomitant]
     Active Substance: METHYLCOBALAMIN
     Indication: Dizziness
     Dosage: 500 UG, TID
     Route: 048
     Dates: start: 20181228
  11. METOCLOPRAMIDE [Concomitant]
     Active Substance: METOCLOPRAMIDE
     Indication: Gastrointestinal disorder
     Dosage: 5 MG, TID
     Route: 048
     Dates: start: 20180803
  12. MIYA-BM [Concomitant]
     Active Substance: CLOSTRIDIUM BUTYRICUM SPORES STRAIN M-55
     Indication: Gastrointestinal disorder
     Dosage: 1 G, TID
     Route: 048
     Dates: start: 20180804
  13. PERINDOPRIL ERBUMINE [Concomitant]
     Active Substance: PERINDOPRIL ERBUMINE
     Indication: Hypertension
     Dosage: 2 MG, QD
     Route: 048
     Dates: start: 20181130
  14. REBAMIPIDE [Concomitant]
     Active Substance: REBAMIPIDE
     Indication: Gastritis prophylaxis
     Dosage: 100 MG, AS NEEDED
     Route: 048
     Dates: start: 20180323
  15. ROZEX (METRONIDAZOLE) [Concomitant]
     Active Substance: METRONIDAZOLE
     Indication: Skin ulcer
     Dosage: UNK, QD
     Route: 062
     Dates: start: 20180921
  16. HERBALS [Concomitant]
     Active Substance: HERBALS
     Indication: Oedema
     Dosage: 3 G, TID
     Route: 048
     Dates: start: 20181114
  17. FERRIC SODIUM CITRATE [Concomitant]
     Active Substance: FERRIC SODIUM CITRATE
     Indication: Anaemia
     Dosage: 100 MG, BID
     Route: 048
     Dates: start: 20180227
  18. URSODIOL [Concomitant]
     Active Substance: URSODIOL
     Indication: Hepatic failure
     Dosage: 100 MG, TID
     Route: 048
     Dates: start: 20180326
  19. ALBUMIN HUMAN [Concomitant]
     Active Substance: ALBUMIN HUMAN
     Indication: Hypoalbuminaemia
     Dosage: 20 G, QD
     Route: 042
     Dates: start: 20190311, end: 20190316
  20. CANRENOATE POTASSIUM [Concomitant]
     Active Substance: CANRENOATE POTASSIUM
     Indication: Ejection fraction decreased
     Dosage: 200 MG, QD
     Route: 042
     Dates: start: 20190311, end: 20190322

REACTIONS (3)
  - Fatigue [Not Recovered/Not Resolved]
  - Pneumonitis [Recovered/Resolved]
  - Pulmonary oedema [Recovered/Resolved]

NARRATIVE: CASE EVENT DATE: 20190304
